FAERS Safety Report 5988466-7 (Version None)
Quarter: 2008Q4

REPORT INFORMATION
  Report Type: 
  Country: None (occurrence: None)
  Receive Date: 20081210
  Receipt Date: 20081204
  Transmission Date: 20090506
  Serious: Yes (Other)
  Sender: FDA-Public Use
  Company Number: AR-ABBOTT-08P-007-0455649-00

PATIENT
  Sex: Male
  Weight: 75 kg

DRUGS (4)
  1. CLARITHROMYCIN [Suspect]
     Indication: ACUTE SINUSITIS
     Route: 048
     Dates: start: 20080604, end: 20080606
  2. CARVEDILOL [Concomitant]
     Indication: HYPERTENSION
     Route: 048
     Dates: start: 20060101
  3. LOSARTAN POTASSIUM [Concomitant]
     Indication: HYPERTENSION
     Route: 048
     Dates: start: 20060101
  4. LEVOTHYROXINE SODIUM [Concomitant]
     Indication: HYPOTHYROIDISM
     Route: 048
     Dates: start: 19980101

REACTIONS (1)
  - BRADYARRHYTHMIA [None]
